FAERS Safety Report 17229107 (Version 5)
Quarter: 2022Q1

REPORT INFORMATION
  Report Type: Report from Study
  Country: JP (occurrence: JP)
  Receive Date: 20200103
  Receipt Date: 20220121
  Transmission Date: 20220424
  Serious: Yes (Hospitalization)
  Sender: FDA-Public Use
  Company Number: JP-CHUGAI-A2019036608ROCHE

PATIENT
  Age: 67 Year
  Sex: Female
  Weight: 61.6 kg

DRUGS (17)
  1. ATEZOLIZUMAB [Suspect]
     Active Substance: ATEZOLIZUMAB
     Indication: Non-small cell lung cancer
     Route: 041
     Dates: start: 20190828, end: 20190828
  2. BEVACIZUMAB [Suspect]
     Active Substance: BEVACIZUMAB
     Indication: Non-small cell lung cancer
     Route: 041
     Dates: start: 20190828
  3. CARBOPLATIN [Suspect]
     Active Substance: CARBOPLATIN
     Indication: Non-small cell lung cancer
     Dosage: AUC 5
     Route: 041
     Dates: start: 20190828
  4. PEMETREXED [Suspect]
     Active Substance: PEMETREXED
     Indication: Non-small cell lung cancer
     Route: 041
     Dates: start: 20190828
  5. LOPERAMIDE [Concomitant]
     Active Substance: LOPERAMIDE
     Indication: Diarrhoea
     Dosage: SINGLE USE AND BEGINNING OF DOSAGE DAY: TRIAL PREINITIATION
     Route: 048
  6. MAGNESIUM OXIDE [Concomitant]
     Active Substance: MAGNESIUM OXIDE
     Indication: Constipation
     Dosage: AT THE OBSTIPATION
     Route: 048
     Dates: start: 20190830
  7. SENNOSIDES [Concomitant]
     Active Substance: SENNOSIDES
     Indication: Constipation
     Dosage: AT THE OBSTIPATION
     Route: 048
     Dates: start: 20190831
  8. SAMSCA [Concomitant]
     Active Substance: TOLVAPTAN
     Indication: Polyuria
     Route: 048
     Dates: start: 20190918, end: 20190923
  9. PIRENOXINE [Concomitant]
     Active Substance: PIRENOXINE
     Indication: Cataract
     Dosage: AND 0.005% FOUR TIMES OF BOTH EYES/BEGINNING OF DOSAGE DAY: TRIAL PREINITIATION
     Route: 047
  10. HYALURONATE SODIUM [Concomitant]
     Active Substance: HYALURONATE SODIUM
     Indication: Eye disorder prophylaxis
     Dosage: ...BOTH EYE.. PROPERLY
     Route: 047
  11. BISACODYL [Concomitant]
     Active Substance: BISACODYL
     Indication: Constipation
     Dosage: AT THE OBSTIPATION
     Route: 054
     Dates: start: 20190831
  12. GLYCOSAMINOGLYCANS [Concomitant]
     Active Substance: GLYCOSAMINOGLYCANS
     Indication: Dry skin prophylaxis
     Dosage: PROPERLY
     Route: 062
  13. MYSER CREAM [Concomitant]
     Indication: Rash
     Route: 062
  14. LOCOID [Concomitant]
     Active Substance: HYDROCORTISONE BUTYRATE
     Indication: Decubitus ulcer
     Dosage: DOSAGE IS UNCERTAIN.
     Route: 062
  15. METHYLCOBALAMIN [Concomitant]
     Active Substance: METHYLCOBALAMIN
     Indication: Prophylaxis
     Route: 030
     Dates: start: 20190808
  16. KCL [Concomitant]
     Active Substance: POTASSIUM CHLORIDE
     Indication: Electrolyte substitution therapy
     Dosage: ONCE DURING TWO KITS AND DAYS
     Route: 041
     Dates: start: 20190918, end: 20190920
  17. WHITE PETROLATUM [Concomitant]
     Active Substance: PETROLATUM
     Indication: Decubitus ulcer
     Dosage: PROPER QUANTITY DURING A DAY ONCE
     Route: 062
     Dates: start: 20190919

REACTIONS (4)
  - Febrile neutropenia [Recovered/Resolved]
  - Hyponatraemia [Recovered/Resolved]
  - Guillain-Barre syndrome [Recovering/Resolving]
  - Decreased appetite [Recovered/Resolved]

NARRATIVE: CASE EVENT DATE: 20190904
